FAERS Safety Report 12595185 (Version 1)
Quarter: 2016Q3

REPORT INFORMATION
  Report Type: Spontaneous
  Country: US (occurrence: US)
  Receive Date: 20160726
  Receipt Date: 20160726
  Transmission Date: 20161109
  Serious: No
  Sender: FDA-Public Use
  Company Number: US-UNITED THERAPEUTICS-UNT-2016-000761

PATIENT
  Age: 67 Year
  Sex: Male
  Weight: 99.77 kg

DRUGS (12)
  1. ORENITRAM [Suspect]
     Active Substance: TREPROSTINIL
     Dosage: 1.5 MG, Q8H
     Route: 048
  2. ORENITRAM [Suspect]
     Active Substance: TREPROSTINIL
     Dosage: UNK
  3. ORENITRAM [Suspect]
     Active Substance: TREPROSTINIL
     Dosage: 1.375 MG, TID
     Route: 048
  4. ORENITRAM [Suspect]
     Active Substance: TREPROSTINIL
     Dosage: 1.75 MG, TID
     Route: 048
  5. ORENITRAM [Suspect]
     Active Substance: TREPROSTINIL
     Dosage: UNK
  6. ORENITRAM [Suspect]
     Active Substance: TREPROSTINIL
     Dosage: 2.5 MG, TID
     Route: 048
  7. ADCIRCA [Suspect]
     Active Substance: TADALAFIL
     Indication: PRODUCT USED FOR UNKNOWN INDICATION
     Dosage: UNK
     Route: 065
  8. ORENITRAM [Suspect]
     Active Substance: TREPROSTINIL
     Dosage: UNK
     Route: 048
  9. ORENITRAM [Suspect]
     Active Substance: TREPROSTINIL
     Indication: PULMONARY ARTERIAL HYPERTENSION
     Dosage: 1.5 MG, TID
     Route: 048
     Dates: start: 20160105
  10. ORENITRAM [Suspect]
     Active Substance: TREPROSTINIL
     Dosage: 1.625 MG, TID
     Route: 048
  11. LETAIRIS [Suspect]
     Active Substance: AMBRISENTAN
     Indication: PRODUCT USED FOR UNKNOWN INDICATION
     Dosage: 10 MG, QD
     Route: 065
     Dates: start: 20160119
  12. TYVASO [Suspect]
     Active Substance: TREPROSTINIL
     Indication: PRODUCT USED FOR UNKNOWN INDICATION
     Dosage: 18-54 MICROGRAMS, QID
     Dates: start: 20150624

REACTIONS (16)
  - Eructation [Unknown]
  - Hypersomnia [Not Recovered/Not Resolved]
  - Flushing [Unknown]
  - Asthenia [Recovering/Resolving]
  - Epistaxis [Recovering/Resolving]
  - Incorrect dose administered [Recovered/Resolved]
  - Sinus headache [Unknown]
  - Fluid retention [Not Recovered/Not Resolved]
  - Headache [Recovering/Resolving]
  - Vomiting [Unknown]
  - Nausea [Recovering/Resolving]
  - Productive cough [Unknown]
  - Diarrhoea [Recovering/Resolving]
  - Fatigue [Unknown]
  - Heart rate decreased [Unknown]
  - Abdominal discomfort [Not Recovered/Not Resolved]

NARRATIVE: CASE EVENT DATE: 201601
